FAERS Safety Report 14183518 (Version 4)
Quarter: 2019Q2

REPORT INFORMATION
  Report Type: Report from Study
  Country: US (occurrence: US)
  Receive Date: 20171113
  Receipt Date: 20190618
  Transmission Date: 20190711
  Serious: Yes (Death, Hospitalization)
  Sender: FDA-Public Use
  Company Number: US-PFIZER INC-2017417542

PATIENT
  Age: 61 Year
  Sex: Male
  Weight: 66.2 kg

DRUGS (23)
  1. FAMOTIDINE. [Concomitant]
     Active Substance: FAMOTIDINE
     Indication: GASTROOESOPHAGEAL REFLUX DISEASE
     Dosage: 20 MG, PRN
     Route: 042
     Dates: start: 20170911
  2. CEFEPIME [Concomitant]
     Active Substance: CEFEPIME HYDROCHLORIDE
     Dosage: CEFEPIME 1 G IN DEXTROSE 5% 50ML
  3. MIRTAZAPINE. [Concomitant]
     Active Substance: MIRTAZAPINE
     Dosage: 10 MG, UNK
  4. AVELUMAB [Suspect]
     Active Substance: AVELUMAB
     Indication: DIFFUSE LARGE B-CELL LYMPHOMA
     Dosage: 610 MG, EVERY 2 WEEKS, EACH 28- DAY CYCLE
     Route: 041
     Dates: start: 20170912, end: 20170912
  5. BENDAMUSTINE [Suspect]
     Active Substance: BENDAMUSTINE
     Indication: DIFFUSE LARGE B-CELL LYMPHOMA
     Dosage: 156.5 MG, 2 CONSECUTIVE DAYS OF EACH 28- DAY CYCLE
     Route: 041
     Dates: start: 20170912, end: 20170913
  6. MEROPENEM. [Concomitant]
     Active Substance: MEROPENEM
  7. DIATRIZOATE MEGLUMINE SODIUM [Concomitant]
     Dosage: DIATRIZOATE MEGLUMINE SODIUM 66-10% ORAL SOLUTION 20 ML
  8. FLUTICASONE. [Concomitant]
     Active Substance: FLUTICASONE
     Indication: SINUS CONGESTION
     Dosage: MCG, QD
     Route: 048
     Dates: start: 20170911
  9. OMEPRAZOLE. [Concomitant]
     Active Substance: OMEPRAZOLE
     Indication: GASTROOESOPHAGEAL REFLUX DISEASE
     Dosage: FROM JUL 20 MG, QD
     Route: 048
     Dates: start: 20170705
  10. FUROSEMIDE. [Concomitant]
     Active Substance: FUROSEMIDE
  11. METRONIDAZOLE. [Concomitant]
     Active Substance: METRONIDAZOLE
     Dosage: 500 MG/100 ML
  12. TOBRAMYCIN. [Concomitant]
     Active Substance: TOBRAMYCIN
     Dosage: 320MG IN SODIUM CHLORIDE 0.9% 117.5ML
  13. RIVAROXABAN [Concomitant]
     Active Substance: RIVAROXABAN
     Indication: DEEP VEIN THROMBOSIS
     Dosage: MG, QD
     Route: 048
     Dates: start: 20170725
  14. METOLAZONE. [Concomitant]
     Active Substance: METOLAZONE
     Dosage: 10 MG, UNK
  15. FLUCONAZOLE. [Concomitant]
     Active Substance: FLUCONAZOLE
  16. METHYLPHENIDATE. [Concomitant]
     Active Substance: METHYLPHENIDATE
  17. MIDODRINE [Concomitant]
     Active Substance: MIDODRINE
     Dosage: 10 MG, UNK
  18. MORPHINE SULFATE. [Suspect]
     Active Substance: MORPHINE SULFATE
     Indication: ANALGESIC THERAPY
     Dosage: 1-4 MG, PRN
     Route: 042
     Dates: start: 20170923
  19. LORATADINE-PSEUDOEPHEDRINE [Concomitant]
     Indication: NASAL CONGESTION
     Dosage: MG, QD
     Route: 048
     Dates: start: 20170911
  20. VANCOMYCIN [Concomitant]
     Active Substance: VANCOMYCIN
     Dosage: 1000 MG, UNK
  21. RITUXIMAB. [Suspect]
     Active Substance: RITUXIMAB
     Indication: DIFFUSE LARGE B-CELL LYMPHOMA
     Dosage: 653 MG, DAY 1 OF EACH 28- DAY CYCLE
     Route: 041
     Dates: start: 20170911, end: 20170911
  22. ALBUMIN (HUMAN) [Concomitant]
     Active Substance: ALBUMIN HUMAN
     Dosage: INJECTION 25G
  23. GLYCOPYRROLATE. [Concomitant]
     Active Substance: GLYCOPYRROLATE

REACTIONS (2)
  - Small intestinal obstruction [Not Recovered/Not Resolved]
  - Respiratory failure [Fatal]

NARRATIVE: CASE EVENT DATE: 20170922
